FAERS Safety Report 8236517-1 (Version None)
Quarter: 2012Q1

REPORT INFORMATION
  Report Type: 
  Country: None (occurrence: None)
  Receive Date: 20120327
  Receipt Date: 20120320
  Transmission Date: 20120608
  Serious: Yes (Other)
  Sender: FDA-Public Use
  Company Number: US-VERTEX PHARMACEUTICALS INC.-AE-2012-001862

PATIENT
  Sex: Female
  Weight: 70.37 kg

DRUGS (6)
  1. INCIVEK [Suspect]
     Indication: HEPATITIS C
     Route: 048
     Dates: start: 20120201
  2. PEGINTERFERON ALFA-2A [Concomitant]
     Indication: HEPATITIS C
     Route: 058
     Dates: start: 20120201
  3. RIBAVIRIN [Concomitant]
     Dates: start: 20120320
  4. NEXIUM [Concomitant]
  5. IMPREX [Concomitant]
     Indication: MIGRAINE
  6. RIBAVIRIN [Concomitant]
     Indication: HEPATITIS C
     Route: 048
     Dates: start: 20120201, end: 20120319

REACTIONS (8)
  - DIARRHOEA [None]
  - PRURITUS [None]
  - OEDEMA PERIPHERAL [None]
  - RASH GENERALISED [None]
  - DEHYDRATION [None]
  - ANORECTAL DISCOMFORT [None]
  - ANAL HAEMORRHAGE [None]
  - ANAL PRURITUS [None]
